FAERS Safety Report 6819784-8 (Version None)
Quarter: 2010Q3

REPORT INFORMATION
  Report Type: 
  Country: None (occurrence: None)
  Receive Date: 20100707
  Receipt Date: 20100623
  Transmission Date: 20110219
  Serious: Yes (Hospitalization, Other)
  Sender: FDA-Public Use
  Company Number: PHHY2010SE39008

PATIENT
  Sex: Male

DRUGS (2)
  1. AFINITOR [Suspect]
     Indication: MULTIPLE ENDOCRINE ADENOMATOSIS TYPE I
     Dosage: 10 MG, QD
     Dates: start: 20091001, end: 20100525
  2. CREON [Concomitant]

REACTIONS (17)
  - ABDOMINAL PAIN UPPER [None]
  - BLOOD AMYLASE INCREASED [None]
  - BLOOD CREATININE DECREASED [None]
  - BLOOD INSULIN INCREASED [None]
  - BLOOD PARATHYROID HORMONE INCREASED [None]
  - BLOOD PROLACTIN INCREASED [None]
  - C-REACTIVE PROTEIN INCREASED [None]
  - CHOLECYSTITIS [None]
  - DILATATION INTRAHEPATIC DUCT ACQUIRED [None]
  - DISCOMFORT [None]
  - GALLBLADDER DISORDER [None]
  - HAEMOGLOBIN DECREASED [None]
  - LIPASE INCREASED [None]
  - LIVER SCAN ABNORMAL [None]
  - MALAISE [None]
  - PANCREATIC CARCINOMA [None]
  - PANCREATITIS [None]
